FAERS Safety Report 14567000 (Version 1)
Quarter: 2018Q1

REPORT INFORMATION
  Report Type: Report from Study
  Country: DE (occurrence: DE)
  Receive Date: 20180223
  Receipt Date: 20180223
  Transmission Date: 20180509
  Serious: Yes (Death, Other)
  Sender: FDA-Public Use
  Company Number: DE-BAYER-2018-034150

PATIENT
  Age: 59 Year
  Sex: Female

DRUGS (3)
  1. PRASUGREL. [Suspect]
     Active Substance: PRASUGREL
     Indication: ANTICOAGULANT THERAPY
     Route: 065
  2. ASPIRIN. [Suspect]
     Active Substance: ASPIRIN
  3. HEPARIN [Suspect]
     Active Substance: HEPARIN SODIUM
     Indication: ANTICOAGULANT THERAPY
     Route: 065

REACTIONS (4)
  - Pharyngeal haemorrhage [None]
  - Haematemesis [Fatal]
  - Pharyngeal haemorrhage [Fatal]
  - Drug interaction [None]
